FAERS Safety Report 11654787 (Version 2)
Quarter: 2016Q2

REPORT INFORMATION
  Report Type: Report from Study
  Country: BR (occurrence: BR)
  Receive Date: 20151023
  Receipt Date: 20160420
  Transmission Date: 20160815
  Serious: Yes (Hospitalization)
  Sender: FDA-Public Use
  Company Number: PHHY2015BR136083

PATIENT
  Sex: Female
  Weight: 50 kg

DRUGS (2)
  1. EXJADE [Suspect]
     Active Substance: DEFERASIROX
     Dosage: 25 MG/KG, QD (1500 MG ONCE DAILY)
     Route: 048
  2. EXJADE [Suspect]
     Active Substance: DEFERASIROX
     Indication: SICKLE CELL ANAEMIA
     Dosage: 2 DF, UNK
     Route: 048
     Dates: start: 2011

REACTIONS (4)
  - Sickle cell anaemia with crisis [Unknown]
  - Dengue fever [Not Recovered/Not Resolved]
  - Memory impairment [Unknown]
  - Haematocrit decreased [Unknown]
